FAERS Safety Report 14764167 (Version 1)
Quarter: 2018Q2

REPORT INFORMATION
  Report Type: Spontaneous
  Country: FR (occurrence: FR)
  Receive Date: 20180416
  Receipt Date: 20180416
  Transmission Date: 20180711
  Serious: Yes (Other)
  Sender: FDA-Public Use
  Company Number: FR-MYLANLABS-2018M1023279

PATIENT
  Age: 67 Year
  Sex: Male
  Weight: 75.6 kg

DRUGS (1)
  1. ETOPOSIDE MYLAN [Suspect]
     Active Substance: ETOPOSIDE
     Indication: LUNG NEOPLASM MALIGNANT
     Dosage: 184 MG, CYCLE
     Route: 042
     Dates: start: 20180206, end: 20180206

REACTIONS (4)
  - Chest discomfort [Recovered/Resolved]
  - Feeling hot [Recovered/Resolved]
  - Erythema [Recovered/Resolved]
  - Paraesthesia oral [Recovered/Resolved]

NARRATIVE: CASE EVENT DATE: 20180206
